FAERS Safety Report 18117303 (Version 1)
Quarter: 2020Q3

REPORT INFORMATION
  Report Type: Spontaneous
  Country: US (occurrence: US)
  Receive Date: 20200806
  Receipt Date: 20200806
  Transmission Date: 20201103
  Serious: No
  Sender: FDA-Public Use
  Company Number: US-SA-2020SA200655

PATIENT

DRUGS (5)
  1. ECHINACEA HERB [ECHINACEA SPP.] [Concomitant]
     Dosage: UNK
  2. AUBAGIO [Suspect]
     Active Substance: TERIFLUNOMIDE
     Indication: MULTIPLE SCLEROSIS
     Dosage: 14 MG, QD
     Route: 048
     Dates: start: 202004
  3. ASPIRIN [ACETYLSALICYLIC ACID] [Concomitant]
     Active Substance: ASPIRIN
     Dosage: UNK
  4. CAT^S CLAW [Concomitant]
     Active Substance: CAT^S CLAW
     Dosage: UNK
  5. BLACK COHOSH [CIMICIFUGA RACEMOSA] [Concomitant]
     Dosage: UNK

REACTIONS (2)
  - Dry eye [Unknown]
  - Liver function test increased [Unknown]

NARRATIVE: CASE EVENT DATE: 2020
